FAERS Safety Report 13040190 (Version 1)
Quarter: 2016Q4

REPORT INFORMATION
  Report Type: Report from Study
  Country: CA (occurrence: CA)
  Receive Date: 20161219
  Receipt Date: 20161219
  Transmission Date: 20170207
  Serious: Yes (Other)
  Sender: FDA-Public Use
  Company Number: CA-JNJFOC-20161215231

PATIENT
  Age: 51 Year
  Sex: Male

DRUGS (1)
  1. REMICADE [Suspect]
     Active Substance: INFLIXIMAB
     Indication: CROHN^S DISEASE
     Route: 042

REACTIONS (5)
  - Off label use [Unknown]
  - Product use issue [Unknown]
  - Frequent bowel movements [Unknown]
  - Abdominal pain [Unknown]
  - Malaise [Unknown]

NARRATIVE: CASE EVENT DATE: 20161121
